FAERS Safety Report 13735616 (Version 2)
Quarter: 2017Q3

REPORT INFORMATION
  Report Type: Spontaneous
  Country: JP (occurrence: JP)
  Receive Date: 20170710
  Receipt Date: 20170711
  Transmission Date: 20171127
  Serious: Yes (Death, Other)
  Sender: FDA-Public Use
  Company Number: JP-ROCHE-1959133

PATIENT
  Sex: Male

DRUGS (3)
  1. PEGASYS [Suspect]
     Active Substance: PEGINTERFERON ALFA-2A
     Indication: HEPATIC CANCER
     Dosage: DOSAGE IS UNCERTAIN.
     Route: 058
  2. COPEGUS [Suspect]
     Active Substance: RIBAVIRIN
     Indication: PRODUCT USED FOR UNKNOWN INDICATION
     Route: 065
  3. INSULIN HUMAN [Concomitant]
     Active Substance: INSULIN HUMAN
     Dosage: DOSAGE IS UNCERTAIN.
     Route: 065

REACTIONS (9)
  - Deafness [Unknown]
  - Ocular hyperaemia [Unknown]
  - Blood glucose increased [Unknown]
  - Off label use [Unknown]
  - Skin disorder [Fatal]
  - Tinnitus [Unknown]
  - Epistaxis [Unknown]
  - White blood cell disorder [Fatal]
  - Blister [Unknown]
